FAERS Safety Report 8169351-1 (Version None)
Quarter: 2012Q1

REPORT INFORMATION
  Report Type: 
  Country: None (occurrence: None)
  Receive Date: 20120222
  Receipt Date: 20120209
  Transmission Date: 20120608
  Serious: Yes (Hospitalization)
  Sender: FDA-Public Use
  Company Number: 2012-00186

PATIENT
  Age: 49 Year
  Sex: Male
  Weight: 68.7 kg

DRUGS (8)
  1. AMITRIPTYLINE HCL [Concomitant]
  2. FLUOXETINE [Concomitant]
  3. SALBUTAMOL + SALBUTAMOL BASE + SALBUTAMOL SULPHATE + SALBUTAMOL SULPHA [Concomitant]
  4. BECLOMETASONE DIPROPIONATE + BECLOMETHASONE DIPROPIONATE (QVAR) [Concomitant]
  5. ACETAMINOPHEN AND CODEINE PHOSPHATE [Concomitant]
  6. LISINOPRIL [Concomitant]
  7. METFORMIN HCL [Concomitant]
  8. SIMVASTATIN [Suspect]
     Indication: HYPERCHOLESTEROLAEMIA
     Dosage: 40 MG (40 MG, 1 IN 1 D), ORAL
     Route: 048
     Dates: start: 20100101, end: 20110801

REACTIONS (4)
  - PROTEIN URINE PRESENT [None]
  - RHABDOMYOLYSIS [None]
  - CHROMATURIA [None]
  - HAEMATURIA [None]
